FAERS Safety Report 6720480-6 (Version None)
Quarter: 2010Q2

REPORT INFORMATION
  Report Type: 
  Country: None (occurrence: None)
  Receive Date: 20100506
  Receipt Date: 20100422
  Transmission Date: 20101027
  Serious: Yes (Congenital Anomaly, Other)
  Sender: FDA-Public Use
  Company Number: 167-20484-09111005

PATIENT
  Sex: Female
  Weight: 2 kg

DRUGS (7)
  1. INNOHEP [Suspect]
     Dosage: TRANSPLACENTAL
     Route: 064
  2. PROSTAGLANDIN PGE2 (DINOPROSTONE) [Concomitant]
  3. SYNTOCINON [Concomitant]
  4. BUPIVACAINE (BUPIVACAINE) [Concomitant]
  5. FENTANYL-100 [Concomitant]
  6. SYNTOMETRINE (OXYTOCIN, ERGOMETRINE) [Concomitant]
  7. ASPIRIN [Concomitant]

REACTIONS (7)
  - APGAR SCORE LOW [None]
  - CONGENITAL ANOMALY [None]
  - FALLOT'S TETRALOGY [None]
  - FOETAL GROWTH RETARDATION [None]
  - JOINT INSTABILITY [None]
  - MATERNAL DRUGS AFFECTING FOETUS [None]
  - TRISOMY 21 [None]
